FAERS Safety Report 25996512 (Version 2)
Quarter: 2025Q4

REPORT INFORMATION
  Report Type: Spontaneous
  Country: US (occurrence: US)
  Receive Date: 20251104
  Receipt Date: 20251230
  Transmission Date: 20260118
  Serious: No
  Sender: BIOVITRUM
  Company Number: US-BIOVITRUM-2025-US-015013

PATIENT
  Age: 62 Year
  Sex: Female

DRUGS (1)
  1. DOPTELET [Suspect]
     Active Substance: AVATROMBOPAG MALEATE
     Indication: Product used for unknown indication
     Dosage: 30 TABLETS PER PACK 20 MILLIGRAM TABLET
     Dates: start: 20190710

REACTIONS (2)
  - Headache [Not Recovered/Not Resolved]
  - Arthralgia [Unknown]
